FAERS Safety Report 4553932-8 (Version None)
Quarter: 2005Q1

REPORT INFORMATION
  Report Type: 
  Country: None (occurrence: None)
  Receive Date: 20050118
  Receipt Date: 20050105
  Transmission Date: 20050727
  Serious: Yes (Death, Life-Threatening, Hospitalization, Other)
  Sender: FDA-Public Use
  Company Number: JP-ABBOTT-05P-087-0285506-00

PATIENT
  Age: 25 Year
  Sex: Female
  Weight: 45 kg

DRUGS (12)
  1. DEPAKENE [Suspect]
     Indication: MANIA
     Route: 048
     Dates: start: 20040708, end: 20040723
  2. BICAMOL [Suspect]
     Indication: SCHIZOPHRENIA
     Route: 048
     Dates: start: 20040708, end: 20040723
  3. VEGETAMIN [Suspect]
     Indication: SCHIZOPHRENIA
     Route: 048
     Dates: start: 20040708, end: 20040924
  4. RISPERIDONE [Suspect]
     Indication: SCHIZOPHRENIA
     Route: 048
     Dates: start: 20040708, end: 20040723
  5. CARBAMAZEPINE [Suspect]
     Indication: SCHIZOPHRENIA
     Route: 048
     Dates: start: 20040708, end: 20040723
  6. DIAZEPAM [Suspect]
     Indication: SCHIZOPHRENIA
     Route: 048
     Dates: start: 20040726, end: 20040924
  7. SULPIRIDE [Suspect]
     Indication: SCHIZOPHRENIA
     Route: 048
     Dates: start: 20040805, end: 20040924
  8. QUETIAPINE [Suspect]
     Indication: SCHIZOPHRENIA
     Route: 048
     Dates: start: 20040923, end: 20040924
  9. CHLORPROMAZINE [Concomitant]
     Indication: SCHIZOPHRENIA
     Route: 048
     Dates: start: 20040724, end: 20040915
  10. FLUNITRAZEPAM [Concomitant]
     Indication: SCHIZOPHRENIA
     Route: 048
     Dates: start: 20040708, end: 20040924
  11. BROMPERIDOL [Concomitant]
     Indication: SCHIZOPHRENIA
     Route: 048
     Dates: start: 20040724, end: 20040915
  12. PROMETHAZINE HCL [Concomitant]
     Indication: SCHIZOPHRENIA
     Route: 048
     Dates: start: 20040724, end: 20040915

REACTIONS (24)
  - AMMONIA INCREASED [None]
  - ASCITES [None]
  - BLOOD PRESSURE DECREASED [None]
  - BRADYCARDIA [None]
  - COMA [None]
  - CONDITION AGGRAVATED [None]
  - DYSPHAGIA [None]
  - HEPATIC FUNCTION ABNORMAL [None]
  - HEPATITIS ACUTE [None]
  - HYPERCAPNIA [None]
  - HYPOXIA [None]
  - JAUNDICE [None]
  - LOGORRHOEA [None]
  - MULTI-ORGAN FAILURE [None]
  - NEUROLEPTIC MALIGNANT SYNDROME [None]
  - OLIGURIA [None]
  - PNEUMONIA [None]
  - PYREXIA [None]
  - RENAL IMPAIRMENT [None]
  - SOLILOQUY [None]
  - SPUTUM RETENTION [None]
  - STUPOR [None]
  - UNEVALUABLE EVENT [None]
  - UNRESPONSIVE TO VERBAL STIMULI [None]
